FAERS Safety Report 9378983 (Version 2)
Quarter: 2013Q4

REPORT INFORMATION
  Report Type: Spontaneous
  Country: FR (occurrence: FR)
  Receive Date: 20130702
  Receipt Date: 20131009
  Transmission Date: 20140711
  Serious: Yes (Hospitalization, Other)
  Sender: FDA-Public Use
  Company Number: FR-JNJFOC-20130619295

PATIENT
  Sex: Female
  Weight: 64 kg

DRUGS (9)
  1. XARELTO [Suspect]
     Indication: THROMBOSIS PROPHYLAXIS
     Route: 048
     Dates: start: 20130318
  2. XARELTO [Suspect]
     Indication: THROMBOSIS
     Route: 048
     Dates: start: 20130318
  3. LEVOTHYROX [Suspect]
     Indication: PRODUCT USED FOR UNKNOWN INDICATION
     Route: 065
  4. INEXIUM [Suspect]
     Indication: PRODUCT USED FOR UNKNOWN INDICATION
     Route: 065
  5. TEMESTA [Concomitant]
     Route: 065
  6. CRESTOR [Concomitant]
     Route: 065
  7. PAROXETINE [Concomitant]
     Route: 065
  8. BETAHISTINE [Concomitant]
     Route: 065
  9. DEROXAT [Concomitant]
     Route: 065

REACTIONS (3)
  - Pulmonary embolism [Recovering/Resolving]
  - Deep vein thrombosis [Recovering/Resolving]
  - Drug ineffective [Unknown]
